FAERS Safety Report 8894931 (Version 1)
Quarter: 2012Q4

REPORT INFORMATION
  Report Type: 
  Country: CA (occurrence: CA)
  Receive Date: 20121108
  Receipt Date: 20121108
  Transmission Date: 20130627
  Serious: Yes (Other)
  Sender: FDA-Public Use
  Company Number: CA-ASTRAZENECA-2012SE83329

PATIENT
  Age: 74 Year
  Sex: Male

DRUGS (3)
  1. NEXIUM [Suspect]
     Route: 048
  2. METAMUCIL [Concomitant]
  3. MULTIVITAMINE [Concomitant]

REACTIONS (1)
  - Osteoporosis [Not Recovered/Not Resolved]
